FAERS Safety Report 16623218 (Version 2)
Quarter: 2019Q3

REPORT INFORMATION
  Report Type: Spontaneous
  Country: GB (occurrence: GB)
  Receive Date: 20190724
  Receipt Date: 20190727
  Transmission Date: 20191004
  Serious: Yes (Other)
  Sender: FDA-Public Use
  Company Number: GB-AMGEN-GBRSP2019117448

PATIENT
  Age: 67 Year
  Sex: Male

DRUGS (4)
  1. ENBREL [Suspect]
     Active Substance: ETANERCEPT
     Indication: RHEUMATOID ARTHRITIS
     Dosage: 25 MILLIGRAM, 2 TIMES/WK
     Route: 065
  2. PREDNISONE. [Concomitant]
     Active Substance: PREDNISONE
     Dosage: 60 MILLIGRAM, QD
  3. PREDNISONE. [Concomitant]
     Active Substance: PREDNISONE
     Indication: SYNOVITIS
     Dosage: UNK (5-15 MG/DAY, FOR MANY YEARS)
  4. PREDNISONE. [Concomitant]
     Active Substance: PREDNISONE
     Dosage: UNK  (DOSAGE WAS SLOWLY TAPERED)

REACTIONS (5)
  - Cough [Recovering/Resolving]
  - Nodule [Recovering/Resolving]
  - Vasculitis [Recovering/Resolving]
  - Dyspnoea exertional [Recovering/Resolving]
  - Pulmonary cavitation [Recovering/Resolving]

NARRATIVE: CASE EVENT DATE: 1999
